FAERS Safety Report 4865702-1 (Version None)
Quarter: 2005Q4

REPORT INFORMATION
  Report Type: 
  Country: None (occurrence: None)
  Receive Date: 20051223
  Receipt Date: 20051006
  Transmission Date: 20060501
  Serious: Yes (Life-Threatening, Hospitalization)
  Sender: FDA-Public Use
  Company Number: NLWYE035707OCT05

PATIENT
  Sex: Male
  Weight: 81 kg

DRUGS (2)
  1. ENBREL [Suspect]
     Indication: PSORIASIS
     Route: 058
     Dates: start: 20050317, end: 20050901
  2. SOTALOL HCL [Suspect]
     Dates: start: 20051001, end: 20051001

REACTIONS (5)
  - ARRHYTHMIA [None]
  - CARDIAC TAMPONADE [None]
  - HEART RATE DECREASED [None]
  - MYOCARDIAL INFARCTION [None]
  - PACEMAKER COMPLICATION [None]
